FAERS Safety Report 23478326 (Version 1)
Quarter: 2024Q1

REPORT INFORMATION
  Report Type: Report from Study
  Country: US (occurrence: US)
  Receive Date: 20240204
  Receipt Date: 20240204
  Transmission Date: 20240410
  Serious: No
  Sender: FDA-Public Use
  Company Number: US-EXELIXIS-CABO-23069673

PATIENT
  Age: 71 Year
  Sex: Male

DRUGS (2)
  1. CABOMETYX [Suspect]
     Active Substance: CABOZANTINIB S-MALATE
     Indication: Renal cell carcinoma
     Dosage: 20 MG, QD
     Route: 048
  2. CABOMETYX [Suspect]
     Active Substance: CABOZANTINIB S-MALATE
     Dosage: 40 MG (TWO TABLETS OF 20 MG), QD
     Route: 048

REACTIONS (12)
  - Hepatic enzyme increased [Recovering/Resolving]
  - Taste disorder [Unknown]
  - Asthenia [Unknown]
  - Diarrhoea [Recovered/Resolved]
  - Fatigue [Unknown]
  - Constipation [Recovering/Resolving]
  - Rash [Recovering/Resolving]
  - Fistula [Unknown]
  - Pain in extremity [Unknown]
  - Glossitis [Unknown]
  - Ulcer [Unknown]
  - Pain [Unknown]

NARRATIVE: CASE EVENT DATE: 20231201
